FAERS Safety Report 6295449-9 (Version None)
Quarter: 2009Q3

REPORT INFORMATION
  Report Type: 
  Country: None (occurrence: None)
  Receive Date: 20090730
  Receipt Date: 20090724
  Transmission Date: 20100115
  Serious: Yes (Hospitalization)
  Sender: FDA-Public Use
  Company Number: 2009-201165-NL

PATIENT
  Age: 79 Year
  Sex: Male

DRUGS (8)
  1. MIRTAZAPINE [Suspect]
     Indication: DEPRESSION
     Dosage: 15 MG
     Dates: start: 20090626, end: 20090701
  2. COAPROVEL [Suspect]
     Dates: start: 20070201
  3. ACEBUTOLOL HYDROCHLORIDE [Concomitant]
  4. SIMVASTATIN [Concomitant]
  5. CLONAZEPAM [Concomitant]
  6. FLUINDIONE [Concomitant]
  7. MORPHINE SULFATE [Concomitant]
  8. SERENOA REPENS [Concomitant]

REACTIONS (3)
  - CONFUSIONAL STATE [None]
  - HYPOCHLORAEMIA [None]
  - HYPONATRAEMIA [None]
